FAERS Safety Report 25407686 (Version 1)
Quarter: 2025Q2

REPORT INFORMATION
  Report Type: Spontaneous
  Country: CA (occurrence: CA)
  Receive Date: 20250606
  Receipt Date: 20250606
  Transmission Date: 20250717
  Serious: Yes (Hospitalization, Other)
  Sender: PFIZER
  Company Number: CA-PFIZER INC-202500114997

PATIENT
  Age: 75 Year
  Sex: Male

DRUGS (17)
  1. VYNDAMAX [Suspect]
     Active Substance: TAFAMIDIS
     Indication: Cardiac amyloidosis
     Dosage: 61 MG, 1X/DAY
     Route: 048
     Dates: start: 20240426
  2. ALLOPURINOL [Concomitant]
     Active Substance: ALLOPURINOL
  3. BISOPROLOL [Concomitant]
     Active Substance: BISOPROLOL
  4. CAPSAICIN [Concomitant]
     Active Substance: CAPSAICIN
  5. EDOXABAN [Concomitant]
     Active Substance: EDOXABAN
  6. EZETIMIBE [Concomitant]
     Active Substance: EZETIMIBE
  7. FUROSEMIDE [Concomitant]
     Active Substance: FUROSEMIDE
     Dosage: 120 MG, 2X/DAY
  8. JUBLIA [Concomitant]
     Active Substance: EFINACONAZOLE
  9. JARDIANCE [Concomitant]
     Active Substance: EMPAGLIFLOZIN
  10. LINAGLIPTIN [Concomitant]
     Active Substance: LINAGLIPTIN
  11. PANTOPRAZOLE [Concomitant]
     Active Substance: PANTOPRAZOLE
  12. PREGABALIN [Concomitant]
     Active Substance: PREGABALIN
  13. SYSTANE ULTRA [Concomitant]
     Active Substance: POLYETHYLENE GLYCOL 400\PROPYLENE GLYCOL
  14. TUMS ULTRA [Concomitant]
     Active Substance: CALCIUM CARBONATE
  15. VITAMIN C [Concomitant]
     Active Substance: ASCORBIC ACID
  16. VUTRISIRAN [Concomitant]
     Active Substance: VUTRISIRAN
  17. ENTRESTO [Concomitant]
     Active Substance: SACUBITRIL\VALSARTAN

REACTIONS (15)
  - Cardiac failure [Unknown]
  - Pulmonary hypertension [Unknown]
  - Tricuspid valve incompetence [Unknown]
  - Ventricular hypokinesia [Unknown]
  - Renal impairment [Unknown]
  - Neuropathy peripheral [Unknown]
  - Fluid retention [Recovering/Resolving]
  - Hypotension [Unknown]
  - Paraesthesia [Not Recovered/Not Resolved]
  - Burning sensation [Not Recovered/Not Resolved]
  - Asthenia [Unknown]
  - Acquired ATTR amyloidosis [Unknown]
  - Disease progression [Unknown]
  - Tremor [Unknown]
  - Dyskinesia [Unknown]

NARRATIVE: CASE EVENT DATE: 20250301
